FAERS Safety Report 9314482 (Version 1)
Quarter: 2013Q2

REPORT INFORMATION
  Report Type: Spontaneous
  Country: US (occurrence: US)
  Receive Date: 20130529
  Receipt Date: 20130529
  Transmission Date: 20140414
  Serious: Yes (Other)
  Sender: FDA-Public Use
  Company Number: US-PFIZER INC-2013158231

PATIENT
  Sex: 0

DRUGS (3)
  1. EPIPEN [Suspect]
     Indication: HYPERSENSITIVITY
     Dosage: UNK
  2. EPIPEN [Suspect]
     Indication: ANAPHYLACTIC SHOCK
     Dosage: UNK
  3. ALBUTEROL [Concomitant]
     Indication: ASTHMA
     Dosage: UNK

REACTIONS (2)
  - Expired drug administered [Unknown]
  - Drug effect incomplete [Recovered/Resolved]
